FAERS Safety Report 4283509-3 (Version None)
Quarter: 2004Q1

REPORT INFORMATION
  Report Type: 
  Country: None (occurrence: None)
  Receive Date: 20040121
  Receipt Date: 20030512
  Transmission Date: 20041129
  Serious: Yes (Hospitalization)
  Sender: FDA-Public Use
  Company Number: A03200301001

PATIENT
  Age: 75 Year
  Sex: Female
  Weight: 48.9885 kg

DRUGS (7)
  1. PLAVIX [Suspect]
     Indication: ANGIOPLASTY
     Dosage: 75 MG QD - ORAL
     Route: 048
     Dates: start: 20030409
  2. ACETYLSALICYLIC ACID SRT [Concomitant]
  3. ISOSORBIDE [Concomitant]
  4. METOPROLOL TARTRATE [Concomitant]
  5. DIGOXIN [Concomitant]
  6. TRIAMTERENE [Concomitant]
  7. POTASSIUM CHLORIDE [Concomitant]

REACTIONS (3)
  - DECREASED APPETITE [None]
  - NAUSEA [None]
  - STOMACH DISCOMFORT [None]
